FAERS Safety Report 10568860 (Version 1)
Quarter: 2014Q4

REPORT INFORMATION
  Report Type: Spontaneous
  Country: CA (occurrence: CA)
  Receive Date: 20141106
  Receipt Date: 20141106
  Transmission Date: 20150529
  Serious: Yes (Other)
  Sender: FDA-Public Use
  Company Number: CA-TEVA-519837USA

PATIENT
  Age: 44 Year
  Sex: Female

DRUGS (5)
  1. VINCRISTINE [Suspect]
     Active Substance: VINCRISTINE
     Dosage: DOSE NOT REPORTED
     Dates: start: 201311
  2. PREDNISONE. [Suspect]
     Active Substance: PREDNISONE
     Dosage: DOSE NOT REPORTED
     Dates: start: 201311
  3. CYCLOPHOSPHAMIDE. [Suspect]
     Active Substance: CYCLOPHOSPHAMIDE
     Dosage: DOSE NOT REPORTED
     Dates: start: 201311
  4. TREANDA [Suspect]
     Active Substance: BENDAMUSTINE HYDROCHLORIDE
     Indication: PRODUCT USED FOR UNKNOWN INDICATION
     Dosage: DOSE NOT REPORTED
     Route: 042
  5. RITUXAN [Suspect]
     Active Substance: RITUXIMAB
     Indication: PRODUCT USED FOR UNKNOWN INDICATION
     Dosage: DOSE NOT REPORTED
     Dates: start: 201311

REACTIONS (7)
  - Diffuse large B-cell lymphoma [Unknown]
  - Blood lactate dehydrogenase increased [Unknown]
  - Alopecia [Unknown]
  - Pancytopenia [Unknown]
  - Drug effect incomplete [Unknown]
  - Non-Hodgkin^s lymphoma [Unknown]
  - Fear of injection [Unknown]
